FAERS Safety Report 6418805-4 (Version None)
Quarter: 2009Q4

REPORT INFORMATION
  Report Type: 
  Country: None (occurrence: None)
  Receive Date: 20091026
  Receipt Date: 20091019
  Transmission Date: 20100525
  Serious: Yes (Death)
  Sender: FDA-Public Use
  Company Number: 2009SP002734

PATIENT
  Age: 4 Year
  Sex: Male

DRUGS (4)
  1. LUNESTA [Suspect]
     Dosage: ORAL
     Route: 048
     Dates: start: 20090907, end: 20090908
  2. OXYMORPHONE HYDROCHLORIDE [Suspect]
     Dates: start: 20090908, end: 20090101
  3. OXYCODONE HCL [Suspect]
     Dates: start: 20090908, end: 20090101
  4. MOTRIN [Suspect]
     Dates: start: 20090908, end: 20090101

REACTIONS (2)
  - DRUG ADMINISTRATION ERROR [None]
  - MULTIPLE DRUG OVERDOSE [None]
